FAERS Safety Report 6841666-6 (Version None)
Quarter: 2010Q3

REPORT INFORMATION
  Report Type: 
  Country: None (occurrence: None)
  Receive Date: 20100714
  Receipt Date: 20100705
  Transmission Date: 20110219
  Serious: Yes (Hospitalization, Other)
  Sender: FDA-Public Use
  Company Number: FR-ABBOTT-09P-056-0588891-00

PATIENT
  Sex: Female

DRUGS (7)
  1. HUMIRA [Suspect]
     Indication: PSORIATIC ARTHROPATHY
     Route: 058
     Dates: start: 20080501, end: 20080501
  2. HUMIRA [Suspect]
     Indication: PSORIASIS
     Route: 058
     Dates: start: 20080501, end: 20080501
  3. HUMIRA [Suspect]
     Route: 058
     Dates: start: 20080501, end: 20090709
  4. METHOTREXATE [Concomitant]
     Indication: PSORIATIC ARTHROPATHY
     Dates: start: 20080501
  5. RISPERDAL [Concomitant]
     Indication: PSYCHOTIC DISORDER
     Dates: end: 20080501
  6. RISPERDAL [Concomitant]
     Dates: start: 20090601
  7. ZYPREXA [Concomitant]
     Indication: PSYCHOTIC DISORDER
     Dates: start: 20080501, end: 20090601

REACTIONS (3)
  - ANTINUCLEAR ANTIBODY POSITIVE [None]
  - PHOTOSENSITIVITY REACTION [None]
  - SYSTEMIC LUPUS ERYTHEMATOSUS [None]
